FAERS Safety Report 4999464-4 (Version None)
Quarter: 2006Q2

REPORT INFORMATION
  Report Type: 
  Country: None (occurrence: None)
  Receive Date: 20060510
  Receipt Date: 20060510
  Transmission Date: 20061013
  Serious: Yes (Life-Threatening)
  Sender: FDA-Public Use
  Company Number: None

PATIENT
  Age: 80 Year
  Sex: Female
  Weight: 70 kg

DRUGS (16)
  1. WARFARIN SODIUM [Suspect]
     Indication: ATRIAL FIBRILLATION
     Dosage: 2 MG  PO
     Route: 048
     Dates: start: 20060128, end: 20060210
  2. PIPERACILLIN AND TAZOBACTAM [Concomitant]
  3. VERAPAMIL [Concomitant]
  4. METOPROLOL TARTRATE [Concomitant]
  5. DIGOXIN [Concomitant]
  6. FUROSEMIDE [Concomitant]
  7. PREDNISONE TAB [Concomitant]
  8. PHENYTOIN [Concomitant]
  9. ACETAMINOPHEN [Concomitant]
  10. NYSTATIN [Concomitant]
  11. ASCORBIC ACID [Concomitant]
  12. OLANZAPINE [Concomitant]
  13. SSI [Concomitant]
  14. DOCUSATE [Concomitant]
  15. POTASSIUM CHLORIDE [Concomitant]
  16. CALCIUM GLUCONATE [Concomitant]

REACTIONS (5)
  - CEREBROVASCULAR ACCIDENT [None]
  - CONDITION AGGRAVATED [None]
  - HAEMOGLOBIN DECREASED [None]
  - INTERNATIONAL NORMALISED RATIO DECREASED [None]
  - INTERNATIONAL NORMALISED RATIO INCREASED [None]
